FAERS Safety Report 5385170-3 (Version None)
Quarter: 2007Q3

REPORT INFORMATION
  Report Type: 
  Country: None (occurrence: None)
  Receive Date: 20070710
  Receipt Date: 20070402
  Transmission Date: 20080115
  Serious: Yes (Hospitalization)
  Sender: FDA-Public Use
  Company Number: US-2007-012110

PATIENT
  Age: 34 Year
  Sex: Female
  Weight: 63.9 kg

DRUGS (2)
  1. YASMIN [Suspect]
     Indication: ORAL CONTRACEPTION
     Dosage: 1 TAB(S), 1X/DAY, ORAL
     Route: 048
     Dates: start: 20040601, end: 20070210
  2. SYNTHROID [Concomitant]

REACTIONS (1)
  - PULMONARY EMBOLISM [None]
